FAERS Safety Report 5950798-6 (Version None)
Quarter: 2008Q4

REPORT INFORMATION
  Report Type: 
  Country: None (occurrence: None)
  Receive Date: 20081112
  Receipt Date: 20081103
  Transmission Date: 20090506
  Serious: Yes (Death)
  Sender: FDA-Public Use
  Company Number: UA-CELGENEUS-269-C5013-07061643

PATIENT
  Sex: Female
  Weight: 60.5 kg

DRUGS (1)
  1. REVLIMID [Suspect]
     Indication: MULTIPLE MYELOMA
     Route: 048
     Dates: start: 20070312

REACTIONS (1)
  - CEREBROVASCULAR DISORDER [None]
